FAERS Safety Report 12759002 (Version 1)
Quarter: 2016Q3

REPORT INFORMATION
  Report Type: Spontaneous
  Country: US (occurrence: US)
  Receive Date: 20160919
  Receipt Date: 20160919
  Transmission Date: 20161109
  Serious: No
  Sender: FDA-Public Use
  Company Number: US-PFIZER INC-3085628

PATIENT
  Age: 86 Year
  Sex: Female

DRUGS (4)
  1. METOPROLOL TARTRATE. [Suspect]
     Active Substance: METOPROLOL TARTRATE
     Indication: PRODUCT USED FOR UNKNOWN INDICATION
     Dosage: 25 MG, FREQ: 2 DAY; INTERVAL: 1
     Route: 065
     Dates: start: 20150615
  2. XARELTO [Suspect]
     Active Substance: RIVAROXABAN
     Indication: PRODUCT USED FOR UNKNOWN INDICATION
     Dosage: 20 MG, FREQ: 1 DAY; INTERVAL: 1
     Route: 065
     Dates: start: 20150615
  3. AMIODARONE HCL [Suspect]
     Active Substance: AMIODARONE HYDROCHLORIDE
     Indication: PRODUCT USED FOR UNKNOWN INDICATION
     Dosage: 200 MG, FREQ: 1 DAY; INTERVAL: 1
     Route: 065
     Dates: start: 20150615
  4. CHLORTALIDONE [Suspect]
     Active Substance: CHLORTHALIDONE
     Indication: PRODUCT USED FOR UNKNOWN INDICATION
     Dosage: 25 MG, FREQ: 1 DAY; INTERVAL: 1
     Route: 065
     Dates: end: 20150615

REACTIONS (1)
  - Constipation [Unknown]
